FAERS Safety Report 7170378-7 (Version None)
Quarter: 2010Q4

REPORT INFORMATION
  Report Type: 
  Country: None (occurrence: None)
  Receive Date: 20101217
  Receipt Date: 20101012
  Transmission Date: 20110411
  Serious: No
  Sender: FDA-Public Use
  Company Number: A0886400A

PATIENT

DRUGS (1)
  1. PROMACTA [Suspect]
     Route: 048

REACTIONS (1)
  - ARTHRALGIA [None]
